FAERS Safety Report 8911581 (Version 2)
Quarter: 2012Q4

REPORT INFORMATION
  Report Type: 
  Country: PE (occurrence: PE)
  Receive Date: 20121115
  Receipt Date: 20121123
  Transmission Date: 20130627
  Serious: Yes (Hospitalization, Other)
  Sender: FDA-Public Use
  Company Number: PE-PFIZER INC-2012281349

PATIENT
  Age: 56 Year
  Sex: Female

DRUGS (1)
  1. XALATAN [Suspect]
     Indication: OCULAR HYPERTENSION
     Dosage: left eye only
     Route: 047
     Dates: start: 20120820

REACTIONS (1)
  - Thyroid cancer [Not Recovered/Not Resolved]
